FAERS Safety Report 13247426 (Version 2)
Quarter: 2017Q1

REPORT INFORMATION
  Report Type: Spontaneous
  Country: IL (occurrence: AU)
  Receive Date: 20170217
  Receipt Date: 20170228
  Transmission Date: 20170428
  Serious: Yes (Death)
  Sender: FDA-Public Use
  Company Number: IL-ALLERGAN-1705843US

PATIENT
  Age: 60 Year
  Sex: Male

DRUGS (4)
  1. DOXYCYCLINE. [Concomitant]
     Active Substance: DOXYCYCLINE
     Indication: PATHOGEN RESISTANCE
  2. METRONIDAZOLE. [Concomitant]
     Active Substance: METRONIDAZOLE
     Indication: PATHOGEN RESISTANCE
  3. TEICOPLANIN [Concomitant]
     Active Substance: TEICOPLANIN
     Indication: PATHOGEN RESISTANCE
  4. CEFTAZIDIME;AVIBACTAM UNK [Suspect]
     Active Substance: AVIBACTAM SODIUM\CEFTAZIDIME
     Indication: PATHOGEN RESISTANCE
     Dosage: UNK
     Route: 065
     Dates: start: 20141021

REACTIONS (2)
  - Drug ineffective [Unknown]
  - Treatment failure [Fatal]
